FAERS Safety Report 16055854 (Version 1)
Quarter: 2019Q1

REPORT INFORMATION
  Report Type: Spontaneous
  Country: US (occurrence: US)
  Receive Date: 20190208
  Receipt Date: 20190208
  Transmission Date: 20190418
  Serious: Yes (Hospitalization)
  Sender: FDA-Public Use
  Company Number: None

PATIENT
  Age: 79 Year
  Sex: Male

DRUGS (5)
  1. POT CITRATE [Concomitant]
     Active Substance: POTASSIUM CITRATE
  2. ESBRIET [Suspect]
     Active Substance: PIRFENIDONE
     Dosage: OTHER FREQUENCY:3 TIMES 2;?
     Route: 048
     Dates: start: 20151006
  3. TAMSULOSIN [Concomitant]
     Active Substance: TAMSULOSIN
  4. ALLOPURINOL. [Concomitant]
     Active Substance: ALLOPURINOL
  5. FLUCONAZOLE. [Concomitant]
     Active Substance: FLUCONAZOLE

REACTIONS (1)
  - Product dose omission [None]

NARRATIVE: CASE EVENT DATE: 20190207
